FAERS Safety Report 10258915 (Version 1)
Quarter: 2014Q2

REPORT INFORMATION
  Report Type: Report from Study
  Country: US (occurrence: US)
  Receive Date: 20140625
  Receipt Date: 20140625
  Transmission Date: 20141212
  Serious: Yes (Hospitalization)
  Sender: FDA-Public Use
  Company Number: US-CELGENEUS-163-C4047-14063301

PATIENT
  Age: 81 Year
  Sex: Male
  Weight: 65.83 kg

DRUGS (4)
  1. CC-4047 [Suspect]
     Indication: PLASMA CELL MYELOMA
     Dosage: 4 MILLIGRAM
     Route: 048
     Dates: start: 20130904
  2. CC-4047 [Suspect]
     Dosage: 3 MILLIGRAM
     Route: 048
  3. CC-4047 [Suspect]
     Dosage: 2 MILLIGRAM
     Route: 048
     Dates: end: 20140226
  4. ZOMETA [Concomitant]
     Indication: HYPERCALCAEMIA
     Route: 065

REACTIONS (2)
  - Metabolic encephalopathy [Unknown]
  - Asthenia [Not Recovered/Not Resolved]
